FAERS Safety Report 7249558-8 (Version None)
Quarter: 2011Q1

REPORT INFORMATION
  Report Type: 
  Country: None (occurrence: None)
  Receive Date: 20110128
  Receipt Date: 20110120
  Transmission Date: 20110831
  Serious: Yes (Other)
  Sender: FDA-Public Use
  Company Number: US-US-EMD SERONO, INC.-230465J10USA

PATIENT
  Sex: Female
  Weight: 77 kg

DRUGS (2)
  1. REBIF [Suspect]
     Indication: MULTIPLE SCLEROSIS
     Route: 058
     Dates: start: 20030910
  2. NEURONTIN [Concomitant]

REACTIONS (4)
  - CYSTITIS [None]
  - EPSTEIN-BARR VIRUS INFECTION [None]
  - MALAISE [None]
  - MULTIPLE SCLEROSIS RELAPSE [None]
